FAERS Safety Report 9787795 (Version 1)
Quarter: 2013Q4

REPORT INFORMATION
  Report Type: Spontaneous
  Country: US (occurrence: US)
  Receive Date: 20131230
  Receipt Date: 20131230
  Transmission Date: 20140711
  Serious: No
  Sender: FDA-Public Use
  Company Number: US-PFIZER INC-2013372487

PATIENT
  Age: 48 Year
  Sex: Female
  Weight: 88.44 kg

DRUGS (6)
  1. GABAPENTIN [Suspect]
     Indication: NEUROPATHY PERIPHERAL
     Dosage: 200 MG, 2X/DAY
     Dates: start: 201305
  2. GABAPENTIN [Suspect]
     Dosage: 300 MG, 2X/DAY
     Dates: end: 201308
  3. INDOMETHACIN [Suspect]
     Indication: NEUROPATHY PERIPHERAL
     Dosage: 25 MG, 1X/DAY
     Dates: start: 201303
  4. INDOMETHACIN [Suspect]
     Dosage: UNK, 2X/DAY
     Dates: end: 201305
  5. BENICAR [Concomitant]
     Indication: HYPERTENSION
     Dosage: UNK, 1X/DAY
  6. CLONIDINE [Concomitant]
     Indication: HYPERTENSION
     Dosage: 0.1 MG, 2X/DAY

REACTIONS (1)
  - Drug ineffective [Unknown]
